FAERS Safety Report 10049975 (Version 3)
Quarter: 2014Q2

REPORT INFORMATION
  Report Type: Report from Study
  Country: NL (occurrence: NL)
  Receive Date: 20140401
  Receipt Date: 20140630
  Transmission Date: 20141212
  Serious: Yes (Hospitalization, Other)
  Sender: FDA-Public Use
  Company Number: NL-JNJFOC-20140312634

PATIENT
  Age: 66 Year
  Sex: Male

DRUGS (7)
  1. ABIRATERONE ACETATE [Suspect]
     Indication: PROSTATE CANCER
     Route: 048
     Dates: start: 20130807, end: 20130904
  2. PREDNISONE [Suspect]
     Indication: PROSTATE CANCER
     Dosage: ^1DD^
     Route: 065
     Dates: start: 201308
  3. ASA [Concomitant]
     Dosage: ^1DD^
     Route: 065
  4. HYDROCHLOROTHIAZIDE [Concomitant]
     Dosage: ^1DD^
     Route: 065
  5. PANTOZOL [Concomitant]
     Dosage: ^1DD^
     Route: 065
  6. AMLODIPINE [Concomitant]
     Dosage: ^1DD^
     Route: 065
  7. SIMVASTATIN [Concomitant]
     Dosage: ^1DD^
     Route: 065

REACTIONS (4)
  - Urosepsis [Recovered/Resolved]
  - Anaemia [Unknown]
  - Lymphoedema [Unknown]
  - Prostate cancer metastatic [Unknown]
